FAERS Safety Report 13075558 (Version 1)
Quarter: 2016Q4

REPORT INFORMATION
  Report Type: Spontaneous
  Country: US (occurrence: US)
  Receive Date: 20161229
  Receipt Date: 20161229
  Transmission Date: 20170207
  Serious: Yes (Other)
  Sender: FDA-Public Use
  Company Number: None

PATIENT
  Age: 62 Year
  Sex: Female
  Weight: 72.58 kg

DRUGS (3)
  1. LOSARTAN POTASSIUM. [Suspect]
     Active Substance: LOSARTAN POTASSIUM
     Indication: BLOOD PRESSURE MEASUREMENT
     Dosage: QUANTITY: AS NEEDED?
     Route: 048
     Dates: start: 20161128, end: 20161208
  2. GENERIC XANAX [Suspect]
     Active Substance: ALPRAZOLAM
     Indication: ANXIETY
  3. PREDNISONE. [Suspect]
     Active Substance: PREDNISONE
     Indication: HYPERSENSITIVITY

REACTIONS (14)
  - Swollen tongue [None]
  - Ocular hyperaemia [None]
  - Lip swelling [None]
  - Insomnia [None]
  - Dehydration [None]
  - Dizziness [None]
  - Vomiting [None]
  - Reaction to preservatives [None]
  - Dysgeusia [None]
  - Product quality issue [None]
  - Vision blurred [None]
  - Swelling face [None]
  - Headache [None]
  - Tinnitus [None]

NARRATIVE: CASE EVENT DATE: 20161128
